FAERS Safety Report 19361560 (Version 3)
Quarter: 2021Q4

REPORT INFORMATION
  Report Type: Other
  Country: MX (occurrence: None)
  Receive Date: 20210601
  Receipt Date: 20211201
  Transmission Date: 20220303
  Serious: Yes (Death, Other)
  Sender: FDA-Public Use
  Company Number: MX-ROCHE-2836630

PATIENT
  Age: 61 Year
  Sex: Female
  Weight: 66.5 kg

DRUGS (7)
  1. KADCYLA [Suspect]
     Active Substance: ADO-TRASTUZUMAB EMTANSINE
     Indication: Breast cancer metastatic
     Dosage: 3.6 MG/KG
     Route: 042
  2. PERJETA [Suspect]
     Active Substance: PERTUZUMAB
     Indication: Breast cancer
     Route: 042
     Dates: start: 201610, end: 20201230
  3. HERCEPTIN [Suspect]
     Active Substance: TRASTUZUMAB
     Indication: Breast cancer
     Route: 042
     Dates: start: 201610, end: 20201230
  4. DOCETAXEL [Concomitant]
     Active Substance: DOCETAXEL
     Indication: Breast cancer
     Dosage: DOSE AND FREQUENCY WERE NOT REPORTED
     Route: 042
     Dates: start: 20161014, end: 20170403
  5. FEMARA [Concomitant]
     Active Substance: LETROZOLE
     Route: 048
  6. PACLITAXEL [Concomitant]
     Active Substance: PACLITAXEL
     Indication: Breast cancer
     Dosage: DOSE AND FREQUENCY WERE NOT REPORTED
     Dates: start: 20200720, end: 20201230
  7. CAPECITABINE [Concomitant]
     Active Substance: CAPECITABINE
     Indication: Breast cancer
     Route: 048
     Dates: start: 202101

REACTIONS (8)
  - Metastases to central nervous system [Unknown]
  - Recurrent cancer [Unknown]
  - Malignant neoplasm progression [Unknown]
  - Metastases to the mediastinum [Unknown]
  - Metastases to liver [Unknown]
  - Metastases to bone [Unknown]
  - Malignant neoplasm progression [Fatal]
  - Illness [Unknown]

NARRATIVE: CASE EVENT DATE: 20200701
